FAERS Safety Report 24027176 (Version 2)
Quarter: 2024Q3

REPORT INFORMATION
  Report Type: Spontaneous
  Country: KR (occurrence: KR)
  Receive Date: 20240628
  Receipt Date: 20240702
  Transmission Date: 20241017
  Serious: Yes (Death, Hospitalization)
  Sender: SAMSUNG BIOEPIS
  Company Number: KR-SAMSUNG BIOEPIS-SB-2024-19532

PATIENT
  Age: 65 Year
  Sex: Female
  Weight: 46.6 kg

DRUGS (41)
  1. TRASTUZUMAB [Suspect]
     Active Substance: TRASTUZUMAB
     Indication: Gallbladder cancer
     Route: 042
  2. NIVOLUMAB [Suspect]
     Active Substance: NIVOLUMAB
     Indication: Gallbladder cancer
     Route: 042
  3. GEMCITABINE [Suspect]
     Active Substance: GEMCITABINE
     Indication: Gallbladder cancer
     Route: 042
  4. CISPLATIN [Suspect]
     Active Substance: CISPLATIN
     Indication: Gallbladder cancer
     Route: 042
  5. TWYNSTA [Concomitant]
     Active Substance: AMLODIPINE BESYLATE\TELMISARTAN
     Indication: Product used for unknown indication
     Dosage: 40/5MG
     Dates: start: 2020
  6. EZETIMIBE\ROSUVASTATIN [Concomitant]
     Active Substance: EZETIMIBE\ROSUVASTATIN
     Indication: Product used for unknown indication
     Dosage: 10/5MG
     Route: 065
     Dates: start: 2020
  7. GLUCOPHAGE XR [Concomitant]
     Active Substance: METFORMIN HYDROCHLORIDE
     Indication: Product used for unknown indication
     Route: 065
     Dates: start: 2020
  8. BROMFENAC SODIUM [Concomitant]
     Active Substance: BROMFENAC SODIUM
     Indication: Product used for unknown indication
     Dosage: OPHTHALMIC SOLUTION
     Route: 065
     Dates: start: 20221007
  9. TROPHERINE [Concomitant]
     Indication: Product used for unknown indication
     Dosage: PRN
     Route: 065
     Dates: start: 20221007
  10. Dobessel [Concomitant]
     Indication: Product used for unknown indication
     Route: 065
  11. PLAVIX [Concomitant]
     Active Substance: CLOPIDOGREL BISULFATE
     Indication: Product used for unknown indication
     Route: 065
  12. Hana codeine phosphate [Concomitant]
     Indication: Prophylaxis
     Dosage: QID
     Route: 065
     Dates: start: 20240329
  13. Hana codeine phosphate [Concomitant]
     Dosage: PRN-AS NEEDED
     Route: 065
     Dates: start: 20240430
  14. GRATRIL [Concomitant]
     Indication: Prophylaxis
     Route: 065
     Dates: start: 20240409
  15. GRATRIL [Concomitant]
     Route: 065
     Dates: start: 20240416
  16. GRATRIL [Concomitant]
     Route: 065
     Dates: start: 20240430
  17. GRATRIL [Concomitant]
     Route: 065
     Dates: start: 20240507
  18. GRATRIL [Concomitant]
     Route: 065
     Dates: start: 20240521
  19. GRATRIL [Concomitant]
     Route: 065
     Dates: start: 20240528
  20. GRATRIL [Concomitant]
     Route: 065
     Dates: start: 20240510
  21. PENIRAMIN [Concomitant]
     Indication: Prophylaxis
     Route: 065
     Dates: start: 20240409
  22. PENIRAMIN [Concomitant]
     Route: 065
     Dates: start: 20240416
  23. PENIRAMIN [Concomitant]
     Route: 065
     Dates: start: 20240430
  24. PENIRAMIN [Concomitant]
     Route: 065
     Dates: start: 20240507
  25. PENIRAMIN [Concomitant]
     Route: 065
     Dates: start: 20240513
  26. PENIRAMIN [Concomitant]
     Route: 065
     Dates: start: 20240521
  27. PENIRAMIN [Concomitant]
     Route: 065
     Dates: start: 20240528
  28. PENIRAMIN [Concomitant]
     Route: 065
     Dates: start: 20240510
  29. EMEND [Concomitant]
     Active Substance: APREPITANT
     Indication: Prophylaxis
     Route: 065
     Dates: start: 20240409
  30. EMEND [Concomitant]
     Active Substance: APREPITANT
     Route: 065
     Dates: start: 20240416
  31. EMEND [Concomitant]
     Active Substance: APREPITANT
     Route: 065
     Dates: start: 20240430
  32. EMEND [Concomitant]
     Active Substance: APREPITANT
     Route: 065
     Dates: start: 20240507
  33. EMEND [Concomitant]
     Active Substance: APREPITANT
     Route: 065
     Dates: start: 20240521
  34. EMEND [Concomitant]
     Active Substance: APREPITANT
     Route: 065
     Dates: start: 20240528
  35. EMEND [Concomitant]
     Active Substance: APREPITANT
     Route: 065
     Dates: start: 20240510
  36. MEGACE F [Concomitant]
     Indication: Prophylaxis
     Dosage: SUSPENSION
     Route: 048
     Dates: start: 20240309
  37. TRAST [Concomitant]
     Indication: Prophylaxis
     Dosage: PATCH
     Route: 065
     Dates: start: 20240504
  38. URUSA [Concomitant]
     Active Substance: URSODIOL
     Indication: Prophylaxis
     Dosage: TID
     Route: 065
     Dates: start: 20240516
  39. Circadin PR [Concomitant]
     Indication: Prophylaxis
     Route: 065
     Dates: start: 20240520
  40. ZOLPIDEM TARTRATE [Concomitant]
     Active Substance: ZOLPIDEM TARTRATE
     Indication: Prophylaxis
     Route: 065
     Dates: start: 20240520
  41. CONOFEN [Concomitant]
     Indication: Prophylaxis
     Dosage: PRN-AS NEEDED
     Route: 065
     Dates: start: 20240522

REACTIONS (2)
  - Pneumonia [Fatal]
  - Disease progression [Fatal]

NARRATIVE: CASE EVENT DATE: 20240617
